FAERS Safety Report 9433246 (Version 2)
Quarter: 2014Q2

REPORT INFORMATION
  Report Type: Spontaneous
  Country: FR (occurrence: FR)
  Receive Date: 20130731
  Receipt Date: 20140411
  Transmission Date: 20141212
  Serious: Yes (Other)
  Sender: FDA-Public Use
  Company Number: FR-GLAXOSMITHKLINE-B0909719A

PATIENT
  Age: 58 Year
  Sex: Male

DRUGS (3)
  1. REQUIP LP [Suspect]
     Indication: PARKINSON^S DISEASE
     Route: 048
     Dates: start: 201103
  2. AZILECT [Suspect]
     Indication: PARKINSON^S DISEASE
     Dosage: 1MG PER DAY
     Route: 048
     Dates: start: 201003
  3. MODOPAR [Suspect]
     Indication: PARKINSON^S DISEASE
     Dosage: 62.5MG THREE TIMES PER DAY
     Route: 048
     Dates: start: 201103

REACTIONS (5)
  - Somnolence [Not Recovered/Not Resolved]
  - Sleep attacks [Not Recovered/Not Resolved]
  - Insomnia [Not Recovered/Not Resolved]
  - Incorrect dose administered [Unknown]
  - Inappropriate schedule of drug administration [Unknown]
